FAERS Safety Report 16598699 (Version 2)
Quarter: 2019Q3

REPORT INFORMATION
  Report Type: Report from Study
  Country: GB (occurrence: GB)
  Receive Date: 20190719
  Receipt Date: 20190729
  Transmission Date: 20191004
  Serious: Yes (Death, Other)
  Sender: FDA-Public Use
  Company Number: GB-PFIZER INC-2019089191

PATIENT
  Sex: Female

DRUGS (49)
  1. ERIBULIN [Suspect]
     Active Substance: ERIBULIN
     Indication: HER-2 POSITIVE BREAST CANCER
     Dosage: 2.5 MG, EVERY 3 WEEKS
     Route: 042
     Dates: start: 20190222, end: 20190412
  2. FLUCLOXACILLIN [Concomitant]
     Active Substance: FLUCLOXACILLIN
     Indication: PSEUDOMONAS INFECTION
     Dosage: UNK
     Dates: start: 20190627, end: 20190703
  3. DOCETAXEL. [Suspect]
     Active Substance: DOCETAXEL
     Dosage: 108 MG, EVERY 3 WEEKS
     Route: 042
     Dates: start: 20150925, end: 20151127
  4. TRASTUZUMAB. [Suspect]
     Active Substance: TRASTUZUMAB
     Indication: HER-2 POSITIVE BREAST CANCER
     Dosage: 525 MG SINGLE (LOADING DOSE 8 MG/KG)
     Route: 042
     Dates: start: 20150721, end: 20150721
  5. FILGRASTIM [Concomitant]
     Active Substance: FILGRASTIM
     Dosage: 300 UG, 1X/DAY
     Route: 058
     Dates: start: 20151025, end: 20151031
  6. VITAMIN C [Concomitant]
     Active Substance: ASCORBIC ACID
     Dosage: 1 DF, 1X/DAY
     Route: 048
     Dates: start: 20171213
  7. LOPERAMIDE [Concomitant]
     Active Substance: LOPERAMIDE
     Dosage: 2 MG, UNK
     Route: 048
     Dates: start: 20181101
  8. LORAZEPAM. [Concomitant]
     Active Substance: LORAZEPAM
     Indication: ANXIETY
     Dosage: 1 MG, UNK
     Route: 048
     Dates: start: 20190611, end: 20190703
  9. FLUCLOXACILLIN [Concomitant]
     Active Substance: FLUCLOXACILLIN
     Indication: PNEUMONIA
     Dosage: UNK
  10. NYSTATIN. [Concomitant]
     Active Substance: NYSTATIN
     Indication: ORAL CANDIDIASIS
     Dosage: 4 UNK, 1X/DAY
     Route: 048
     Dates: start: 20190614, end: 20190629
  11. METRONIDAZOLE. [Concomitant]
     Active Substance: METRONIDAZOLE
     Dosage: 2.5 %, 1X/DAY
     Route: 061
     Dates: start: 20190508, end: 20190529
  12. DOCETAXEL. [Suspect]
     Active Substance: DOCETAXEL
     Indication: HER-2 POSITIVE BREAST CANCER
     Dosage: 108 MG, EVERY 3 WEEKS
     Route: 042
     Dates: start: 20150722, end: 20150722
  13. PERTUZUMAB. [Suspect]
     Active Substance: PERTUZUMAB
     Dosage: 420 MG, EVERY 3 WEEKS (MAINTENANCE DOSE)
     Route: 042
     Dates: start: 20150814, end: 20180511
  14. TAZOCIN [Concomitant]
     Active Substance: PIPERACILLIN SODIUM\TAZOBACTAM SODIUM
     Dosage: 18 G, 1X/DAY
     Route: 042
     Dates: start: 20151005, end: 20151008
  15. COD-LIVER OIL [Concomitant]
     Active Substance: COD LIVER OIL
     Dosage: UNK
     Route: 048
     Dates: start: 20171213
  16. VERAPAMIL [Concomitant]
     Active Substance: VERAPAMIL HYDROCHLORIDE
     Indication: VENTRICULAR EXTRASYSTOLES
     Dosage: UNK
     Route: 048
     Dates: start: 20160906
  17. GENTAMICIN. [Concomitant]
     Active Substance: GENTAMICIN
     Indication: PNEUMONIA
     Dosage: 345 MG, 1X/DAY
     Route: 042
     Dates: start: 20151005, end: 20151008
  18. AMITRIPTYLINE HYDROCHLORIDE. [Concomitant]
     Active Substance: AMITRIPTYLINE HYDROCHLORIDE
     Dosage: 10 MG, UNK
     Route: 048
     Dates: start: 20190213
  19. CO-AMOXICLAV [AMOXICILLIN;CLAVULANATE POTASSIUM] [Concomitant]
     Active Substance: AMOXICILLIN\CLAVULANATE POTASSIUM
     Dosage: 3 DF, 1X/DAY
     Route: 048
     Dates: start: 20190513, end: 20190520
  20. BUDESONIDE. [Concomitant]
     Active Substance: BUDESONIDE
     Dosage: 9 MG, UNK
     Route: 048
     Dates: start: 20181101, end: 20181129
  21. TRASTUZUMAB EMTANSINE [Suspect]
     Active Substance: ADO-TRASTUZUMAB EMTANSINE
     Indication: HER-2 POSITIVE BREAST CANCER
     Dosage: 240 MG, EVERY 3 WEEKS
     Route: 042
     Dates: start: 20180625, end: 20180928
  22. TRASTUZUMAB, HYALURONIDASE (HUMAN RECOMBINANT) [Suspect]
     Active Substance: HYALURONIDASE (HUMAN RECOMBINANT)\TRASTUZUMAB
     Indication: HER-2 POSITIVE BREAST CANCER
     Dosage: 600 MG, EVERY 3 WEEKS
     Route: 058
     Dates: start: 20190522
  23. FILGRASTIM [Concomitant]
     Active Substance: FILGRASTIM
     Dosage: 300 UG, 1X/DAY
     Route: 058
     Dates: start: 20151005, end: 20151008
  24. TRIMETHOPRIM. [Concomitant]
     Active Substance: TRIMETHOPRIM
     Dosage: 400 MG, 1X/DAY
     Route: 048
     Dates: start: 20151014, end: 20151202
  25. GLUCOSAMINE [Concomitant]
     Active Substance: GLUCOSAMINE
     Dosage: 1 DF, 1X/DAY
     Route: 048
     Dates: start: 20171213
  26. DOCETAXEL. [Suspect]
     Active Substance: DOCETAXEL
     Dosage: 86 MG, EVERY 3 WEEKS
     Route: 042
     Dates: start: 20150814, end: 20150904
  27. GENTAMICIN. [Concomitant]
     Active Substance: GENTAMICIN
     Dosage: UNK
     Route: 042
     Dates: start: 20190629, end: 20190701
  28. DEXAMETHASONE. [Concomitant]
     Active Substance: DEXAMETHASONE
     Dosage: 4 MG, 1X/DAY
     Route: 048
     Dates: start: 20190303, end: 20190303
  29. MACROGOL [Concomitant]
     Active Substance: POLYETHYLENE GLYCOLS
     Indication: CONSTIPATION
     Dosage: 3 UNK, 1X/DAY
     Route: 048
     Dates: start: 20190516, end: 20190629
  30. CYCLIZINE [Concomitant]
     Active Substance: CYCLIZINE
     Indication: NAUSEA
     Dosage: 150 MG, 1X/DAY
     Route: 048
     Dates: start: 20181121, end: 20190703
  31. ZOPICLONE [Concomitant]
     Active Substance: ZOPICLONE
     Indication: INSOMNIA
     Dosage: 3.75 MG, UNK
     Dates: start: 20190521, end: 20190603
  32. PERTUZUMAB. [Suspect]
     Active Substance: PERTUZUMAB
     Indication: HER-2 POSITIVE BREAST CANCER
     Dosage: 840 MG, SINGLE (LOADING DOSE)
     Route: 042
     Dates: start: 20150721, end: 20150721
  33. PROCHLORPERAZINE. [Concomitant]
     Active Substance: PROCHLORPERAZINE
     Dosage: 15 MG, 1X/DAY
     Route: 048
     Dates: start: 20160106, end: 20160113
  34. DOMPERIDONE [Concomitant]
     Active Substance: DOMPERIDONE
     Dosage: TID FOR 3 DAYS AFTER DAY 1 AND 8 OF CHEM
     Route: 048
     Dates: start: 20190216
  35. DEXAMETHASONE. [Concomitant]
     Active Substance: DEXAMETHASONE
     Dosage: 12 MG, 1X/DAY
     Route: 048
     Dates: start: 20190301, end: 20190301
  36. DEXAMETHASONE. [Concomitant]
     Active Substance: DEXAMETHASONE
     Dosage: 8 MG, 1X/DAY
     Route: 048
     Dates: start: 20190302
  37. TRASTUZUMAB. [Suspect]
     Active Substance: TRASTUZUMAB
     Dosage: MAINTAINANCE DOSE 6 MG/KG (400 MG EVERY 3 WEEKS)
     Route: 042
     Dates: start: 20150814, end: 20180511
  38. NERATINIB [Suspect]
     Active Substance: NERATINIB
     Indication: HER-2 POSITIVE BREAST CANCER
     Dosage: 240 MG, 1X/DAY
     Route: 048
     Dates: start: 20181101, end: 20190109
  39. ZOLEDRONIC ACID [Concomitant]
     Active Substance: ZOLEDRONIC ACID
     Dosage: 4 MG, MONTHLY
     Route: 042
     Dates: start: 20151030
  40. CALCICHEW D3 FORTE [Concomitant]
     Active Substance: CALCIUM\CHOLECALCIFEROL
     Dosage: 2 DF, 1X/DAY
     Route: 048
     Dates: start: 20150720
  41. E45 [Concomitant]
     Active Substance: LANOLIN\LIGHT MINERAL OIL\PARAFFIN
     Dosage: 30 G, UNK
     Route: 061
     Dates: start: 20151116
  42. PARACETAMOL [Concomitant]
     Active Substance: ACETAMINOPHEN
     Dosage: 4 G, 1X/DAY
     Route: 048
     Dates: start: 20151006, end: 20151008
  43. GLYCEROL [Concomitant]
     Active Substance: GLYCERIN
     Indication: CONSTIPATION
     Dosage: 4 G, UNK
     Dates: start: 20190513, end: 20190629
  44. VINORELBINE [Suspect]
     Active Substance: VINORELBINE TARTRATE
     Indication: HER-2 POSITIVE BREAST CANCER
     Dosage: 110 MG, UNK
     Route: 048
     Dates: start: 20190522
  45. CAPECITABINE. [Suspect]
     Active Substance: CAPECITABINE
     Indication: HER-2 POSITIVE BREAST CANCER
     Dosage: 500 MG, UNK
     Route: 048
     Dates: start: 20181031, end: 20190130
  46. METRONIDAZOLE. [Concomitant]
     Active Substance: METRONIDAZOLE
     Dosage: 1200 MG, 1X/DAY
     Route: 048
     Dates: start: 20151005
  47. FILGRASTIM [Concomitant]
     Active Substance: FILGRASTIM
     Dosage: 300 UG, 1X/DAY
     Route: 058
     Dates: start: 20151120, end: 20151126
  48. BISOPROLOL [Concomitant]
     Active Substance: BISOPROLOL
     Dosage: 1.25 MG, 1X/DAY
     Route: 048
     Dates: start: 20160826, end: 20160906
  49. ONDANSETRON [Concomitant]
     Active Substance: ONDANSETRON
     Dosage: 8 MG, UNK
     Route: 048
     Dates: start: 20190522, end: 20190610

REACTIONS (8)
  - Pleural effusion [Not Recovered/Not Resolved]
  - Musculoskeletal chest pain [Not Recovered/Not Resolved]
  - Pneumonia [Fatal]
  - Breast pain [Not Recovered/Not Resolved]
  - Breast pain [Recovered/Resolved]
  - Pseudomonas infection [Not Recovered/Not Resolved]
  - Cough [Not Recovered/Not Resolved]
  - Ureteric obstruction [Recovered/Resolved]

NARRATIVE: CASE EVENT DATE: 20160316
